FAERS Safety Report 14755769 (Version 14)
Quarter: 2019Q3

REPORT INFORMATION
  Report Type: Spontaneous
  Country: US (occurrence: US)
  Receive Date: 20180413
  Receipt Date: 20190802
  Transmission Date: 20191004
  Serious: Yes (Hospitalization, Other)
  Sender: FDA-Public Use
  Company Number: US-PFIZER INC-2018149031

PATIENT
  Age: 56 Year
  Sex: Female
  Weight: 69 kg

DRUGS (8)
  1. HERCEPTIN [Concomitant]
     Active Substance: TRASTUZUMAB
     Dosage: UNK
  2. IBRANCE [Suspect]
     Active Substance: PALBOCICLIB
     Dosage: 100 MG, CYCLIC (1 CAPSULE DAILY FOR 3 WEEKS ON, THEN 1 WEEK OFF)
     Dates: start: 201802, end: 201812
  3. IBRANCE [Suspect]
     Active Substance: PALBOCICLIB
     Dosage: 75 MG, UNK
     Route: 048
     Dates: start: 201808
  4. IBRANCE [Suspect]
     Active Substance: PALBOCICLIB
     Indication: BREAST CANCER METASTATIC
     Dosage: 125MG ONCE A DAY, CYCLIC (X21)
     Route: 048
     Dates: start: 2017
  5. IBRANCE [Suspect]
     Active Substance: PALBOCICLIB
     Dosage: 100 MG, CYCLIC (ONCE A DAY/ONCE EVERY EVENING FOR 21 DAYS)
     Route: 048
     Dates: start: 2018
  6. IBRANCE [Suspect]
     Active Substance: PALBOCICLIB
     Dosage: 100 MG, UNK
     Dates: start: 201809
  7. IBRANCE [Suspect]
     Active Substance: PALBOCICLIB
     Dosage: 125 MG, 1X/DAY
     Route: 048
     Dates: start: 2017, end: 201812
  8. LETROZOLE. [Concomitant]
     Active Substance: LETROZOLE
     Indication: BREAST CANCER
     Dosage: 2.5 MG, 1X/DAY

REACTIONS (34)
  - Cardiomyopathy [Not Recovered/Not Resolved]
  - Stomatitis [Unknown]
  - Oropharyngeal pain [Recovered/Resolved]
  - Cheilitis [Recovering/Resolving]
  - Chest pain [Unknown]
  - Nausea [Unknown]
  - Neutropenia [Unknown]
  - Ascites [Unknown]
  - Thrombocytopenia [Not Recovered/Not Resolved]
  - Full blood count decreased [Recovering/Resolving]
  - Lymphadenopathy [Recovering/Resolving]
  - Dyspnoea [Unknown]
  - Intentional dose omission [Unknown]
  - Productive cough [Not Recovered/Not Resolved]
  - Viral infection [Recovered/Resolved]
  - Abdominal discomfort [Unknown]
  - Malaise [Recovered/Resolved]
  - Neoplasm progression [Not Recovered/Not Resolved]
  - Drug intolerance [Not Recovered/Not Resolved]
  - Gastrooesophageal reflux disease [Recovering/Resolving]
  - Bronchitis [Not Recovered/Not Resolved]
  - Perineal rash [Not Recovered/Not Resolved]
  - Eating disorder [Recovered/Resolved]
  - Pulmonary oedema [Unknown]
  - Dyspepsia [Not Recovered/Not Resolved]
  - Dysphagia [Recovering/Resolving]
  - Oesophagitis [Unknown]
  - Dysphonia [Not Recovered/Not Resolved]
  - Pain [Unknown]
  - Weight decreased [Recovering/Resolving]
  - Immune system disorder [Unknown]
  - Decreased appetite [Unknown]
  - Headache [Unknown]
  - Fatigue [Recovered/Resolved]

NARRATIVE: CASE EVENT DATE: 2017
